FAERS Safety Report 12371459 (Version 1)
Quarter: 2016Q2

REPORT INFORMATION
  Report Type: Report from Study
  Country: US (occurrence: US)
  Receive Date: 20160516
  Receipt Date: 20160516
  Transmission Date: 20160815
  Serious: Yes (Hospitalization, Other)
  Sender: FDA-Public Use
  Company Number: US-ROCHE-1756960

PATIENT
  Sex: Male

DRUGS (5)
  1. FLONASE (UNITED STATES) [Concomitant]
     Dosage: TAKEN AS NEEDED.
     Route: 045
  2. NASOCORT [Concomitant]
     Active Substance: BUDESONIDE
     Indication: HYPERSENSITIVITY
     Dosage: 1 SPRAY IN EACH NOSTRIL, THREE TIMES PER DAY.
     Route: 045
  3. PREDNISOLONE. [Concomitant]
     Active Substance: PREDNISOLONE
     Indication: PNEUMONIA
     Dosage: TAKEN FOR FOUR DAYS.
     Route: 065
  4. XOLAIR [Suspect]
     Active Substance: OMALIZUMAB
     Indication: MILK ALLERGY
     Route: 065
     Dates: start: 2005
  5. PREDNISOLONE. [Concomitant]
     Active Substance: PREDNISOLONE
     Dosage: TAKEN FOR FOUR DAYS.
     Route: 065
     Dates: end: 201605

REACTIONS (4)
  - Anaphylactic shock [Recovered/Resolved]
  - Sinusitis [Unknown]
  - Pectus excavatum [Not Recovered/Not Resolved]
  - Bronchitis [Unknown]
